FAERS Safety Report 5527201-3 (Version None)
Quarter: 2007Q4

REPORT INFORMATION
  Report Type: 
  Country: None (occurrence: None)
  Receive Date: 20071121
  Receipt Date: 20071112
  Transmission Date: 20080405
  Serious: Yes (Other)
  Sender: FDA-Public Use
  Company Number: 2007SP021673

PATIENT
  Age: 51 Year
  Sex: Male
  Weight: 112.4921 kg

DRUGS (4)
  1. PEG-INTRON (PEGINTERON ALFA-2B) [Suspect]
     Indication: HEPATITIS C
     Dosage: 1.5 MG; QW; SC
     Route: 058
     Dates: start: 20070808
  2. RIBAVIRIN [Suspect]
     Indication: HEPATITIS C
     Dosage: 1200 MG; QD; PO
     Route: 048
     Dates: start: 20070808
  3. TEGRETOL [Concomitant]
  4. SYNTHROID [Concomitant]

REACTIONS (2)
  - CATARACT [None]
  - CONDITION AGGRAVATED [None]
